FAERS Safety Report 18376038 (Version 3)
Quarter: 2020Q4

REPORT INFORMATION
  Report Type: Report from Study
  Country: DE (occurrence: DE)
  Receive Date: 20201013
  Receipt Date: 20201111
  Transmission Date: 20210114
  Serious: Yes (Hospitalization)
  Sender: FDA-Public Use
  Company Number: NVSC2020DE228218

PATIENT
  Sex: Male

DRUGS (39)
  1. INHIXA [Concomitant]
     Active Substance: ENOXAPARIN SODIUM
     Indication: THROMBOSIS PROPHYLAXIS
     Dosage: UNK
     Route: 065
     Dates: start: 20200806, end: 20200814
  2. INHIXA [Concomitant]
     Active Substance: ENOXAPARIN SODIUM
     Indication: PROPHYLAXIS
     Dosage: UNK
     Route: 065
     Dates: start: 20200817, end: 20200825
  3. TRAMAL [Concomitant]
     Active Substance: TRAMADOL
     Indication: RENAL PAIN
     Dosage: UNK
     Route: 065
     Dates: start: 20200815
  4. TRAMAL LONG [Concomitant]
     Active Substance: TRAMADOL
     Indication: RENAL PAIN
     Dosage: UNK
     Route: 065
     Dates: start: 20200805, end: 20200812
  5. METHOTREXAT [Concomitant]
     Active Substance: METHOTREXATE
     Indication: SALVAGE THERAPY
     Dosage: UNK
     Route: 065
     Dates: start: 20201015, end: 20201015
  6. DEXAMETHASONE. [Suspect]
     Active Substance: DEXAMETHASONE
     Indication: NON-HODGKIN^S LYMPHOMA
     Dosage: UNK
     Route: 048
     Dates: start: 20200813
  7. SPASMOLYT [Concomitant]
     Active Substance: TROSPIUM CHLORIDE
     Indication: DYSURIA
     Dosage: UNK
     Route: 065
     Dates: start: 20200821
  8. ZOPICLON [Concomitant]
     Active Substance: ZOPICLONE
     Indication: SLEEP DISORDER
     Dosage: UNK
     Route: 065
     Dates: start: 20200808
  9. ZOPICLON [Concomitant]
     Active Substance: ZOPICLONE
     Dosage: UNK
     Route: 065
     Dates: start: 20200810
  10. TRAMAL LONG [Concomitant]
     Active Substance: TRAMADOL
     Dosage: UNK
     Route: 065
     Dates: start: 20200821
  11. PANTOPRAZOL [Concomitant]
     Active Substance: PANTOPRAZOLE SODIUM
     Indication: PROPHYLAXIS
     Dosage: UNK
     Route: 065
     Dates: start: 20200808
  12. METHOTREXAT [Concomitant]
     Active Substance: METHOTREXATE
     Dosage: UNK
     Route: 065
     Dates: start: 20201015, end: 20201016
  13. SPASMOLYT [Concomitant]
     Active Substance: TROSPIUM CHLORIDE
     Indication: POLLAKIURIA
  14. GRANOCYTE [Concomitant]
     Active Substance: LENOGRASTIM
     Indication: NON-HODGKIN^S LYMPHOMA
     Dosage: UNK
     Route: 065
     Dates: start: 20200821, end: 20200821
  15. FURSEMID [Concomitant]
     Active Substance: FUROSEMIDE
     Indication: ACUTE KIDNEY INJURY
     Dosage: UNK
     Route: 065
     Dates: start: 20200810, end: 20200811
  16. KALINOR [Concomitant]
     Indication: PROPHYLAXIS
     Dosage: UNK
     Route: 065
     Dates: start: 20200819, end: 20200819
  17. GRANISETRON [Concomitant]
     Active Substance: GRANISETRON
     Indication: PROPHYLAXIS
     Dosage: UNK
     Route: 065
     Dates: start: 20200813, end: 20200813
  18. PREDNISOLONE. [Concomitant]
     Active Substance: PREDNISOLONE
     Indication: SALVAGE THERAPY
     Dosage: UNK
     Route: 065
     Dates: start: 20201010, end: 20201014
  19. GEMCITABINE. [Suspect]
     Active Substance: GEMCITABINE
     Indication: NON-HODGKIN^S LYMPHOMA
     Dosage: 2.1 UNK, QW
     Route: 042
     Dates: start: 20200813
  20. ALLOPURINOL. [Concomitant]
     Active Substance: ALLOPURINOL
     Indication: PROPHYLAXIS
     Dosage: UNK
     Route: 065
     Dates: start: 20200805
  21. APREPITANT. [Concomitant]
     Active Substance: APREPITANT
     Dosage: UNK
     Route: 065
     Dates: start: 20200814, end: 20200816
  22. CAPROS AKUT [Concomitant]
     Indication: RENAL PAIN
     Dosage: UNK
     Route: 065
     Dates: start: 20200805, end: 20200807
  23. VALACICLOVIR [Concomitant]
     Active Substance: VALACYCLOVIR HYDROCHLORIDE
     Indication: PROPHYLAXIS
     Dosage: UNK
     Route: 065
     Dates: start: 20200807
  24. PARACETAMOL [Concomitant]
     Active Substance: ACETAMINOPHEN
     Indication: FEBRILE NEUTROPENIA
     Dosage: UNK
     Route: 065
     Dates: start: 20200822, end: 20200823
  25. FURSEMID [Concomitant]
     Active Substance: FUROSEMIDE
     Indication: RENAL PAIN
     Dosage: UNK
     Route: 065
     Dates: start: 20200808, end: 20200808
  26. AMPHO MORONAL [Concomitant]
     Active Substance: AMPHOTERICIN B
     Indication: PROPHYLAXIS
     Dosage: UNK
     Route: 065
     Dates: start: 20200812, end: 20200815
  27. AMPHO MORONAL [Concomitant]
     Active Substance: AMPHOTERICIN B
     Indication: PROPHYLAXIS
     Dosage: UNK
     Route: 065
     Dates: start: 20200817, end: 20200819
  28. COTRIM FORTE [Concomitant]
     Active Substance: SULFAMETHOXAZOLE\TRIMETHOPRIM
     Indication: PROPHYLAXIS
     Dosage: UNK
     Route: 065
     Dates: start: 20200810
  29. CYCLOPHOSPHAMIDE. [Concomitant]
     Active Substance: CYCLOPHOSPHAMIDE
     Indication: SALVAGE THERAPY
     Dosage: UNK
     Route: 065
     Dates: start: 20201009, end: 20201013
  30. CISPLATIN. [Suspect]
     Active Substance: CISPLATIN
     Indication: NON-HODGKIN^S LYMPHOMA
     Dosage: 75 UNK, ONCE/SINGLE
     Route: 042
     Dates: start: 20200813
  31. MCP [Concomitant]
     Active Substance: METOCLOPRAMIDE HYDROCHLORIDE
     Indication: PROPHYLAXIS
     Dosage: UNK
     Route: 065
     Dates: start: 20200820, end: 20200821
  32. LINEZOLID. [Concomitant]
     Active Substance: LINEZOLID
     Indication: BACTERIURIA
     Dosage: UNK
     Route: 065
     Dates: start: 20200814
  33. DAUNORUBICIN [Concomitant]
     Active Substance: DAUNORUBICIN
     Indication: SALVAGE THERAPY
     Dosage: UNK
     Route: 065
     Dates: start: 20201103, end: 20201104
  34. RITUXIMAB. [Suspect]
     Active Substance: RITUXIMAB
     Indication: NON-HODGKIN^S LYMPHOMA
     Dosage: 2 (UNSPECIFIED UNITS), TID
     Route: 042
     Dates: start: 20200812
  35. NEULASTA [Concomitant]
     Active Substance: PEGFILGRASTIM
     Indication: NON-HODGKIN^S LYMPHOMA
     Dosage: UNK
     Route: 065
     Dates: start: 20200821, end: 20200821
  36. MEROPENEM HIKMA [Concomitant]
     Active Substance: MEROPENEM
     Indication: FEBRILE NEUTROPENIA
     Dosage: UNK
     Route: 065
     Dates: start: 20200822, end: 20200831
  37. APREPITANT. [Concomitant]
     Active Substance: APREPITANT
     Indication: PROPHYLAXIS
     Dosage: UNK
     Route: 065
     Dates: start: 20200813, end: 20200813
  38. DEKRISTOL [Concomitant]
     Active Substance: CHOLECALCIFEROL
     Indication: PROPHYLAXIS
     Dosage: UNK
     Route: 065
     Dates: start: 20200817
  39. VINCRISTIN [Concomitant]
     Active Substance: VINCRISTINE
     Indication: SALVAGE THERAPY
     Dosage: UNK
     Route: 065
     Dates: start: 20201103, end: 20201103

REACTIONS (2)
  - Urinary tract infection [Not Recovered/Not Resolved]
  - General physical health deterioration [Not Recovered/Not Resolved]

NARRATIVE: CASE EVENT DATE: 20200817
